FAERS Safety Report 12699706 (Version 1)
Quarter: 2016Q3

REPORT INFORMATION
  Report Type: Report from Study
  Country: CN (occurrence: CN)
  Receive Date: 20160830
  Receipt Date: 20160830
  Transmission Date: 20161109
  Serious: Yes (Life-Threatening)
  Sender: FDA-Public Use
  Company Number: CN-ASTELLAS-2016US033430

PATIENT
  Age: 45 Year
  Sex: Male

DRUGS (5)
  1. METHYLPREDNISOLONE. [Suspect]
     Active Substance: METHYLPREDNISOLONE
     Indication: PROPHYLAXIS AGAINST TRANSPLANT REJECTION
     Route: 048
     Dates: start: 20160803, end: 20160816
  2. TACROLIMUS. [Suspect]
     Active Substance: TACROLIMUS
     Indication: PROPHYLAXIS AGAINST TRANSPLANT REJECTION
     Dosage: (4-6 MG) DAILY DOSE, TWICE DAILY
     Route: 048
     Dates: start: 20160803, end: 20160816
  3. MYCOPHENOLATE MOFETIL. [Suspect]
     Active Substance: MYCOPHENOLATE MOFETIL
     Indication: PROPHYLAXIS AGAINST TRANSPLANT REJECTION
     Dosage: 6 DF (DAILY DOSE), TWICE DAILY
     Route: 048
     Dates: start: 20160803, end: 20160816
  4. ATG-FRESENIUS [Suspect]
     Active Substance: LAPINE T-LYMPHOCYTE IMMUNE GLOBULIN
     Indication: PROPHYLAXIS AGAINST TRANSPLANT REJECTION
     Route: 042
     Dates: start: 20160806, end: 20160808
  5. VITAMIN K1 [Concomitant]
     Active Substance: PHYTONADIONE
     Indication: HAEMOSTASIS
     Route: 041
     Dates: start: 20160801

REACTIONS (3)
  - Renal haemorrhage [Recovering/Resolving]
  - Kidney infection [Recovering/Resolving]
  - Vascular rupture [Recovering/Resolving]

NARRATIVE: CASE EVENT DATE: 20160816
